FAERS Safety Report 10064976 (Version 20)
Quarter: 2021Q3

REPORT INFORMATION
  Report Type: Report from Study
  Country: CA (occurrence: CA)
  Receive Date: 20140408
  Receipt Date: 20210809
  Transmission Date: 20211014
  Serious: Yes (Other)
  Sender: FDA-Public Use
  Company Number: PHHY2014CA041974

PATIENT
  Age: 65 Year
  Sex: Male

DRUGS (10)
  1. SANDOSTATIN LAR DEPOT [Suspect]
     Active Substance: OCTREOTIDE ACETATE
     Dosage: 60 MG, Q4W
     Route: 030
  2. SANDOSTATIN LAR DEPOT [Suspect]
     Active Substance: OCTREOTIDE ACETATE
     Indication: CARCINOID TUMOUR
     Dosage: 30 MG, Q3W
     Route: 030
     Dates: start: 20101210
  3. SANDOSTATIN LAR DEPOT [Suspect]
     Active Substance: OCTREOTIDE ACETATE
     Dosage: 30 MG, Q3W
     Route: 030
     Dates: start: 20151015
  4. SANDOSTATIN LAR DEPOT [Suspect]
     Active Substance: OCTREOTIDE ACETATE
     Dosage: 20 MG, QMO
     Route: 030
     Dates: start: 20110304
  5. SANDOSTATIN LAR DEPOT [Suspect]
     Active Substance: OCTREOTIDE ACETATE
     Dosage: 30 MG, QMO
     Route: 030
     Dates: start: 20110304
  6. LUTETIUM (177LU) CHLORIDE [Suspect]
     Active Substance: LUTETIUM CHLORIDE LU-177
     Indication: CARCINOID TUMOUR
     Dosage: UNK
     Route: 065
     Dates: start: 20170612
  7. OCTREOTIDE. [Suspect]
     Active Substance: OCTREOTIDE
     Indication: CARCINOID TUMOUR
     Dosage: UNK UNK, Q6H
     Route: 058
     Dates: start: 2017
  8. OCTREOTIDE. [Suspect]
     Active Substance: OCTREOTIDE
  9. WARFARIN [Concomitant]
     Active Substance: WARFARIN
     Indication: PRODUCT USED FOR UNKNOWN INDICATION
     Dosage: 9 MG, QD (FOR 3 YEARS)
     Route: 065
  10. OCTREOTIDE. [Suspect]
     Active Substance: OCTREOTIDE

REACTIONS (22)
  - Loss of consciousness [Unknown]
  - Malignant neoplasm progression [Unknown]
  - Erythema [Unknown]
  - Vomiting [Unknown]
  - Arthritis [Unknown]
  - Pain [Unknown]
  - Arthralgia [Unknown]
  - Blood pressure diastolic decreased [Unknown]
  - Blood pressure systolic increased [Unknown]
  - Fall [Unknown]
  - International normalised ratio fluctuation [Unknown]
  - Flushing [Unknown]
  - Dehydration [Unknown]
  - Incorrect dose administered [Unknown]
  - Influenza like illness [Recovered/Resolved]
  - Nausea [Unknown]
  - Inappropriate schedule of product administration [Unknown]
  - Carcinoid tumour [Unknown]
  - Eye discharge [Unknown]
  - Diarrhoea [Unknown]
  - Contusion [Unknown]
  - Musculoskeletal discomfort [Unknown]

NARRATIVE: CASE EVENT DATE: 20101210
